FAERS Safety Report 9999133 (Version 1)
Quarter: 2014Q1

REPORT INFORMATION
  Report Type: Spontaneous
  Country: CA (occurrence: None)
  Receive Date: 20140311
  Receipt Date: 20140311
  Transmission Date: 20141002
  Serious: Yes (Other)
  Sender: FDA-Public Use
  Company Number: None

PATIENT
  Age: 58 Year
  Sex: Male
  Weight: 81.65 kg

DRUGS (1)
  1. ACETAZOLAMIDE [Suspect]
     Indication: INTRAOCULAR PRESSURE INCREASED
     Dosage: 1 PILL FOUR TIMES DAILY
     Route: 048
     Dates: start: 20140304, end: 20140307

REACTIONS (4)
  - Abnormal behaviour [None]
  - Confusional state [None]
  - Illogical thinking [None]
  - Depressed level of consciousness [None]
